FAERS Safety Report 4818679-9 (Version None)
Quarter: 2005Q4

REPORT INFORMATION
  Report Type: 
  Country: None (occurrence: None)
  Receive Date: 20051101
  Receipt Date: 20051017
  Transmission Date: 20060501
  Serious: Yes (Death, Hospitalization)
  Sender: FDA-Public Use
  Company Number: 002#4#2005-00194

PATIENT
  Age: 78 Year
  Sex: Female
  Weight: 48.0813 kg

DRUGS (6)
  1. GLYCOLAX [Suspect]
     Indication: CONSTIPATION
     Dosage: 17G, 1 IN 1 D, ORAL
     Route: 048
     Dates: start: 20041001, end: 20041201
  2. ROFECOXIB [Suspect]
     Indication: ARTHRITIS
     Dosage: ORAL
     Route: 048
     Dates: start: 20041001
  3. VALSARTAN [Concomitant]
  4. NIFEDIPINE [Concomitant]
  5. LEVOTHYROXINE [Concomitant]
  6. VALDECOXIB [Concomitant]

REACTIONS (10)
  - CLOSTRIDIUM COLITIS [None]
  - CROHN'S DISEASE [None]
  - INFECTION PARASITIC [None]
  - INTESTINAL ISCHAEMIA [None]
  - PAIN [None]
  - RASH [None]
  - SALMONELLOSIS [None]
  - SEPSIS [None]
  - URTICARIA [None]
  - WEIGHT DECREASED [None]
